FAERS Safety Report 16704429 (Version 1)
Quarter: 2019Q3

REPORT INFORMATION
  Report Type: Spontaneous
  Country: JP (occurrence: JP)
  Receive Date: 20190814
  Receipt Date: 20190814
  Transmission Date: 20191004
  Serious: Yes (Hospitalization)
  Sender: FDA-Public Use
  Company Number: PHJP2019JP009240

PATIENT
  Age: 33 Year
  Sex: Male
  Weight: 65 kg

DRUGS (1)
  1. TEGRETOL [Suspect]
     Active Substance: CARBAMAZEPINE
     Indication: CRANIAL NERVE DISORDER
     Dosage: ONE TO TWO TABLETS A DAY (10-20 MG) AS NEEDED, PRN
     Route: 048
     Dates: start: 20190618, end: 20190627

REACTIONS (3)
  - Pyrexia [Unknown]
  - Erythema multiforme [Recovered/Resolved]
  - C-reactive protein increased [Unknown]

NARRATIVE: CASE EVENT DATE: 20190627
